FAERS Safety Report 25531409 (Version 3)
Quarter: 2025Q3

REPORT INFORMATION
  Report Type: Report from Study
  Country: EU (occurrence: EU)
  Receive Date: 20250708
  Receipt Date: 20250804
  Transmission Date: 20251021
  Serious: Yes (Other)
  Sender: ABBVIE
  Company Number: EU-ABBVIE-6282458

PATIENT
  Age: 77 Year
  Sex: Female

DRUGS (2)
  1. FOSCARBIDOPA\FOSLEVODOPA [Suspect]
     Active Substance: FOSCARBIDOPA\FOSLEVODOPA
     Indication: Parkinson^s disease
     Route: 058
     Dates: start: 20250429
  2. FOSCARBIDOPA\FOSLEVODOPA [Suspect]
     Active Substance: FOSCARBIDOPA\FOSLEVODOPA
     Route: 058

REACTIONS (15)
  - Tracheostomy [Not Recovered/Not Resolved]
  - On and off phenomenon [Not Recovered/Not Resolved]
  - Catheter site bruise [Not Recovered/Not Resolved]
  - Catheter site haematoma [Not Recovered/Not Resolved]
  - Dyskinesia [Recovering/Resolving]
  - Sleep disorder [Recovering/Resolving]
  - Poor quality sleep [Not Recovered/Not Resolved]
  - Catheter site erythema [Not Recovered/Not Resolved]
  - Catheter site pain [Not Recovered/Not Resolved]
  - Catheter site warmth [Not Recovered/Not Resolved]
  - Loss of personal independence in daily activities [Not Recovered/Not Resolved]
  - Insomnia [Not Recovered/Not Resolved]
  - Unevaluable event [Unknown]
  - Mobility decreased [Not Recovered/Not Resolved]
  - Abscess [Recovering/Resolving]

NARRATIVE: CASE EVENT DATE: 20250101
